FAERS Safety Report 6447282-2 (Version None)
Quarter: 2009Q4

REPORT INFORMATION
  Report Type: 
  Country: None (occurrence: None)
  Receive Date: 20091119
  Receipt Date: 20091116
  Transmission Date: 20100525
  Serious: Yes (Death, Hospitalization, Other)
  Sender: FDA-Public Use
  Company Number: PHHY2009GB33013

PATIENT
  Sex: Female
  Weight: 59 kg

DRUGS (4)
  1. CLOZARIL [Suspect]
     Indication: SCHIZOPHRENIA
     Dosage: 150 MG MANE AND 300 MG NOCTE
     Dates: start: 20000510
  2. CYANOCOBALAMIN [Concomitant]
  3. CALCEOS [Concomitant]
  4. MIXTARD HUMAN 70/30 [Concomitant]
     Indication: TYPE 1 DIABETES MELLITUS

REACTIONS (12)
  - CONJUNCTIVAL HAEMORRHAGE [None]
  - CONTUSION [None]
  - CONVULSION [None]
  - DIABETES MELLITUS INADEQUATE CONTROL [None]
  - FACE INJURY [None]
  - HAEMATEMESIS [None]
  - HALLUCINATION, OLFACTORY [None]
  - HYPOGLYCAEMIA [None]
  - JOINT DISLOCATION [None]
  - MENTAL DISORDER [None]
  - PETECHIAE [None]
  - SUDDEN DEATH [None]
